FAERS Safety Report 6288531-3 (Version None)
Quarter: 2009Q3

REPORT INFORMATION
  Report Type: 
  Country: None (occurrence: None)
  Receive Date: 20090729
  Receipt Date: 20090722
  Transmission Date: 20100115
  Serious: Yes (Death)
  Sender: FDA-Public Use
  Company Number: US-GENENTECH-284489

PATIENT
  Sex: Male
  Weight: 97.506 kg

DRUGS (1)
  1. RAPTIVA [Suspect]
     Indication: PSORIASIS
     Dosage: 125 MG, 1/WEEK
     Dates: start: 20040501, end: 20090101

REACTIONS (2)
  - SEPSIS [None]
  - VIRAL INFECTION [None]
